FAERS Safety Report 5626361-3 (Version None)
Quarter: 2008Q1

REPORT INFORMATION
  Report Type: 
  Country: None (occurrence: None)
  Receive Date: 20080211
  Receipt Date: 20080131
  Transmission Date: 20080703
  Serious: Yes (Hospitalization)
  Sender: FDA-Public Use
  Company Number: STI-2008-00372

PATIENT
  Sex: Female

DRUGS (1)
  1. BETADERM [Suspect]
     Indication: ALOPECIA
     Dosage: DROP BY DROP ALTERNATE DAYS ON SCALP WHERE LESS HAIR

REACTIONS (3)
  - EAR PAIN [None]
  - HEADACHE [None]
  - SKIN SWELLING [None]
